FAERS Safety Report 9676538 (Version 1)
Quarter: 2013Q4

REPORT INFORMATION
  Report Type: Spontaneous
  Country: IT (occurrence: IT)
  Receive Date: 20131107
  Receipt Date: 20131107
  Transmission Date: 20140711
  Serious: Yes (Hospitalization)
  Sender: FDA-Public Use
  Company Number: IT-MYLANLABS-2013S1024265

PATIENT
  Age: 49 Year
  Sex: Female

DRUGS (2)
  1. LORAZEPAM [Suspect]
     Dates: start: 20130910, end: 20130910
  2. CYMBALTA [Suspect]
     Route: 048
     Dates: start: 20130910, end: 20130910

REACTIONS (2)
  - Suicide attempt [Not Recovered/Not Resolved]
  - Sopor [Not Recovered/Not Resolved]
